FAERS Safety Report 9517194 (Version 1)
Quarter: 2013Q3

REPORT INFORMATION
  Report Type: Spontaneous
  Country: US (occurrence: US)
  Receive Date: 20130911
  Receipt Date: 20130911
  Transmission Date: 20140515
  Serious: Yes (Other)
  Sender: FDA-Public Use
  Company Number: US-PFIZER INC-2011293287

PATIENT
  Sex: Female
  Weight: 2.13 kg

DRUGS (10)
  1. ZOLOFT [Suspect]
     Indication: DEPRESSION
     Dosage: 25 MG, EVERY BEDTIME FOR THE FIRST WEEK
     Route: 064
     Dates: start: 20021125, end: 2002
  2. ZOLOFT [Suspect]
     Dosage: 50 MG, EVERY BEDTIME
     Route: 064
     Dates: start: 2002
  3. ZOLOFT [Suspect]
     Dosage: 50 MG, EVERY BEDTIME
     Route: 064
     Dates: start: 200305
  4. ZOLOFT [Suspect]
     Dosage: 50 MG DAILY
     Route: 064
     Dates: start: 20030821
  5. ZOLOFT [Suspect]
     Dosage: 100 MG DAILY
     Route: 064
     Dates: start: 20050307
  6. ZELNORM [Concomitant]
     Indication: IRRITABLE BOWEL SYNDROME
     Dosage: UNK
     Route: 064
  7. MIDOL [Concomitant]
     Dosage: UNK
     Route: 064
  8. TYLENOL [Concomitant]
     Dosage: UNK
     Route: 064
  9. TYLENOL PM [Concomitant]
     Dosage: UNK
     Route: 064
  10. LORCET [Concomitant]
     Indication: PAIN
     Dosage: 10 MG, AT NIGHT TIME
     Route: 064
     Dates: start: 20050104

REACTIONS (2)
  - Maternal exposure timing unspecified [Unknown]
  - Premature baby [Unknown]
